FAERS Safety Report 21917778 (Version 2)
Quarter: 2023Q1

REPORT INFORMATION
  Report Type: Spontaneous
  Country: IN (occurrence: IN)
  Receive Date: 20230127
  Receipt Date: 20230130
  Transmission Date: 20230418
  Serious: Yes (Other)
  Sender: FDA-Public Use
  Company Number: IN-STRIDES ARCOLAB LIMITED-2023SP001106

PATIENT
  Age: 18 Year
  Sex: Female

DRUGS (4)
  1. ITRACONAZOLE [Suspect]
     Active Substance: ITRACONAZOLE
     Indication: Fungal infection
     Dosage: 400 MILLIGRAM, BID (LOADING DOSE)
     Route: 048
  2. ITRACONAZOLE [Suspect]
     Active Substance: ITRACONAZOLE
     Dosage: 200 MILLIGRAM, BID
     Route: 048
  3. POTASSIUM IODIDE [Suspect]
     Active Substance: POTASSIUM IODIDE
     Indication: Fungal infection
     Dosage: UNK (THE PATIENT RECEIVED SUPERSATURATED POTASSIUM IODIDE SOLUTION, PREPARED BY DISSOLVING POTASSIUM
     Route: 065
  4. ETHYL ALCOHOL [Concomitant]
     Active Substance: ALCOHOL
     Indication: Vehicle solution use
     Dosage: UNK (THE PATIENT RECEIVED SUPERSATURATED POTASSIUM IODIDE SOLUTION, PREPARED BY DISSOLVING POTASSIUM
     Route: 065

REACTIONS (2)
  - Hypothyroidism [Recovered/Resolved]
  - Off label use [Unknown]
